FAERS Safety Report 9876956 (Version 1)
Quarter: 2014Q1

REPORT INFORMATION
  Report Type: Spontaneous
  Country: GB (occurrence: GB)
  Receive Date: 20140206
  Receipt Date: 20140206
  Transmission Date: 20141002
  Serious: Yes (Disabling)
  Sender: FDA-Public Use
  Company Number: GB-ACCORD-021595

PATIENT
  Age: 60 Year
  Sex: Male
  Weight: 82.55 kg

DRUGS (13)
  1. GREEN LIPPED MUSSEL [Concomitant]
  2. INSULIN GLULISINE [Concomitant]
  3. CO-CODAMOL [Concomitant]
     Dosage: 15/500MG
  4. IBUPROFEN [Concomitant]
  5. ROSUVASTATIN\ROSUVASTATIN CALCIUM [Suspect]
     Indication: HYPERCHOLESTEROLAEMIA
  6. OMEPRAZOLE [Concomitant]
     Dates: start: 201311
  7. ASPIRIN [Concomitant]
  8. LAXIDO [Concomitant]
     Indication: GASTROINTESTINAL DISORDER
  9. SIMVASTATIN [Suspect]
     Indication: HYPERCHOLESTEROLAEMIA
     Route: 048
     Dates: end: 20100404
  10. METFORMIN [Concomitant]
  11. MENTHOL AND METHYL SALICYLATE [Concomitant]
     Indication: ARTHRALGIA
     Dosage: APPLIED ON A MORNING TO KNEES TO RELIEVE PAIN
  12. INSULIN GLARGINE [Concomitant]
     Dosage: INJECTION EVENING
  13. VOLTAROL [Concomitant]
     Indication: ARTHRALGIA

REACTIONS (2)
  - Amnesia [Recovered/Resolved]
  - Muscle atrophy [Recovered/Resolved]
